FAERS Safety Report 18158170 (Version 2)
Quarter: 2020Q4

REPORT INFORMATION
  Report Type: Spontaneous
  Country: US (occurrence: US)
  Receive Date: 20200817
  Receipt Date: 20201012
  Transmission Date: 20210113
  Serious: Yes (Death, Other)
  Sender: FDA-Public Use
  Company Number: US-JNJFOC-20200811088

PATIENT
  Sex: Male

DRUGS (16)
  1. LUPRON [Concomitant]
     Active Substance: LEUPROLIDE ACETATE
     Dates: start: 20200604
  2. LUPRON [Concomitant]
     Active Substance: LEUPROLIDE ACETATE
     Dates: start: 20200607
  3. OXCARBAZEPINE. [Concomitant]
     Active Substance: OXCARBAZEPINE
  4. ERLEADA [Suspect]
     Active Substance: APALUTAMIDE
     Indication: PRODUCT USED FOR UNKNOWN INDICATION
     Dosage: 60 X 4 TABLETS
     Route: 048
     Dates: start: 20200120
  5. HYDROCODONE [Concomitant]
     Active Substance: HYDROCODONE
  6. XANAX [Concomitant]
     Active Substance: ALPRAZOLAM
     Indication: SLEEP DISORDER THERAPY
  7. LUPRON [Concomitant]
     Active Substance: LEUPROLIDE ACETATE
     Dates: start: 20191110
  8. LUPRON [Concomitant]
     Active Substance: LEUPROLIDE ACETATE
     Dates: start: 20200601
  9. XGEVA [Concomitant]
     Active Substance: DENOSUMAB
     Dates: start: 20190212
  10. XGEVA [Concomitant]
     Active Substance: DENOSUMAB
     Dates: start: 20200302
  11. XGEVA [Concomitant]
     Active Substance: DENOSUMAB
     Dates: start: 20200604
  12. XGEVA [Concomitant]
     Active Substance: DENOSUMAB
     Dates: start: 20200106
  13. XGEVA [Concomitant]
     Active Substance: DENOSUMAB
     Dates: start: 20200101
  14. XGEVA [Concomitant]
     Active Substance: DENOSUMAB
     Dates: start: 20200601
  15. XGEVA [Concomitant]
     Active Substance: DENOSUMAB
     Dates: start: 20200203
  16. XGEVA [Concomitant]
     Active Substance: DENOSUMAB
     Dates: start: 20200505

REACTIONS (2)
  - Death [Fatal]
  - Neoplasm malignant [Recovering/Resolving]
